FAERS Safety Report 5154087-1 (Version None)
Quarter: 2006Q4

REPORT INFORMATION
  Report Type: 
  Country: None (occurrence: None)
  Receive Date: 20061116
  Receipt Date: 20061116
  Transmission Date: 20070319
  Serious: Yes (Hospitalization)
  Sender: FDA-Public Use
  Company Number: None

PATIENT
  Age: 42 Year
  Sex: Female
  Weight: 67 kg

DRUGS (1)
  1. CEFAZOLIN [Suspect]
     Indication: PROPHYLAXIS
     Dosage: 1 GRAM X 1 IV DRIP
     Route: 041
     Dates: start: 20061114, end: 20061114

REACTIONS (2)
  - DRUG HYPERSENSITIVITY [None]
  - DYSPHAGIA [None]
